FAERS Safety Report 21049875 (Version 1)
Quarter: 2022Q3

REPORT INFORMATION
  Report Type: Other
  Country: GB (occurrence: None)
  Receive Date: 20220706
  Receipt Date: 20220706
  Transmission Date: 20221026
  Serious: Yes (Death)
  Sender: FDA-Public Use
  Company Number: GB-ROCHE-3133550

PATIENT
  Age: 62 Year
  Sex: Male

DRUGS (1)
  1. ESBRIET [Suspect]
     Active Substance: PIRFENIDONE
     Indication: Idiopathic pulmonary fibrosis
     Route: 048
     Dates: start: 20190211

REACTIONS (1)
  - Death [Fatal]

NARRATIVE: CASE EVENT DATE: 20220624
